FAERS Safety Report 18595339 (Version 1)
Quarter: 2020Q4

REPORT INFORMATION
  Report Type: Spontaneous
  Country: US (occurrence: US)
  Receive Date: 20201209
  Receipt Date: 20201209
  Transmission Date: 20210114
  Serious: Yes (Hospitalization)
  Sender: FDA-Public Use
  Company Number: None

PATIENT
  Age: 49 Year
  Sex: Female
  Weight: 96.3 kg

DRUGS (10)
  1. CARDIZEM LA [Concomitant]
     Active Substance: DILTIAZEM HYDROCHLORIDE
  2. CAPECITABINE. [Suspect]
     Active Substance: CAPECITABINE
     Indication: VOMITING
     Route: 048
     Dates: start: 20200811, end: 20201209
  3. TADALAFIL. [Concomitant]
     Active Substance: TADALAFIL
  4. CAPECITABINE. [Suspect]
     Active Substance: CAPECITABINE
     Indication: NAUSEA
     Route: 048
     Dates: start: 20200811, end: 20201209
  5. QUESTRAN [Concomitant]
     Active Substance: CHOLESTYRAMINE
  6. HYDROCHLOROTHIAZIDE. [Concomitant]
     Active Substance: HYDROCHLOROTHIAZIDE
  7. ATORVASTATIN CALCIUM. [Concomitant]
     Active Substance: ATORVASTATIN CALCIUM
  8. PANTOPRAZOLE SODIUM. [Concomitant]
     Active Substance: PANTOPRAZOLE SODIUM
  9. NORGESTIM-ETH ESTRAD TRIPHASIC [Concomitant]
  10. OPSUMIT [Concomitant]
     Active Substance: MACITENTAN

REACTIONS (3)
  - Septic shock [None]
  - COVID-19 [None]
  - Respiratory failure [None]

NARRATIVE: CASE EVENT DATE: 20201209
